FAERS Safety Report 24438809 (Version 1)
Quarter: 2024Q4

REPORT INFORMATION
  Report Type: Spontaneous
  Country: US (occurrence: US)
  Receive Date: 20241015
  Receipt Date: 20241015
  Transmission Date: 20250115
  Serious: No
  Sender: IPSEN BIOPHARMACEUTICALS, INC.
  Company Number: US-IPSEN Group, Research and Development-2024-20517

PATIENT
  Age: 68 Year
  Sex: Female

DRUGS (2)
  1. IQIRVO [Suspect]
     Active Substance: ELAFIBRANOR
     Indication: Enzyme abnormality
     Route: 048
  2. IQIRVO [Suspect]
     Active Substance: ELAFIBRANOR
     Indication: Off label use

REACTIONS (5)
  - Urinary tract infection [Unknown]
  - Diarrhoea [Unknown]
  - Blood urea increased [Unknown]
  - Glomerular filtration rate increased [Unknown]
  - Off label use [Unknown]
